FAERS Safety Report 15687077 (Version 1)
Quarter: 2018Q4

REPORT INFORMATION
  Report Type: Spontaneous
  Country: US (occurrence: US)
  Receive Date: 20181121
  Receipt Date: 20181121
  Transmission Date: 20190205
  Serious: Yes (Hospitalization)
  Sender: FDA-Public Use
  Company Number: None

PATIENT
  Age: 41 Year
  Weight: 79.1 kg

DRUGS (25)
  1. ACETAMINOPHEN. [Suspect]
     Active Substance: ACETAMINOPHEN
  2. ZOPICLONE [Suspect]
     Active Substance: ZOPICLONE
  3. CYCLOPHOSPHAMIDE. [Suspect]
     Active Substance: CYCLOPHOSPHAMIDE
     Dates: end: 20180801
  4. PANTOPRAZOLE [Concomitant]
     Active Substance: PANTOPRAZOLE
  5. SULFAMETHOXAZOLE/TRIMETHOPRIM [Concomitant]
     Active Substance: SULFAMETHOXAZOLE\TRIMETHOPRIM
  6. VITAMIN B COMPLEX [Concomitant]
     Active Substance: CYANOCOBALAMIN\DEXPANTHENOL\NIACINAMIDE\PYRIDOXINE HYDROCHLORIDE\RIBOFLAVIN 5^-PHOSPHATE SODIUM\THIAMINE HYDROCHLORIDE\VITAMIN B COMPLEX
  7. CYTARABINE. [Suspect]
     Active Substance: CYTARABINE
     Dates: end: 20180811
  8. METHOTREXATE. [Suspect]
     Active Substance: METHOTREXATE
     Dates: end: 20180725
  9. MORPHINE [Concomitant]
     Active Substance: MORPHINE
  10. OLANZAPINE. [Concomitant]
     Active Substance: OLANZAPINE
  11. ONDANSETRON [Concomitant]
     Active Substance: ONDANSETRON
  12. PROCHLORPERAZINE. [Concomitant]
     Active Substance: PROCHLORPERAZINE
  13. TINZAPARIN [Concomitant]
     Active Substance: TINZAPARIN
  14. DALTEPARIN [Suspect]
     Active Substance: DALTEPARIN
  15. LORAZEPAM. [Concomitant]
     Active Substance: LORAZEPAM
  16. PHYTONADIONE LIQUID [Concomitant]
  17. ONCASPAR [Suspect]
     Active Substance: PEGASPARGASE
     Dates: end: 20180718
  18. PEG3350 [Concomitant]
     Active Substance: POLYETHYLENE GLYCOL 3350
  19. POTASSIUM CHLORIDE. [Concomitant]
     Active Substance: POTASSIUM CHLORIDE
  20. MERCAPTOPURINE. [Suspect]
     Active Substance: MERCAPTOPURINE
     Dates: end: 20180814
  21. HYDROMORPHONE [Concomitant]
     Active Substance: HYDROMORPHONE
  22. METCLOPRAMIDE [Suspect]
     Active Substance: METOCLOPRAMIDE
  23. DICLOFENAC [Concomitant]
     Active Substance: DICLOFENAC
  24. DIMENHYDRINATE. [Concomitant]
     Active Substance: DIMENHYDRINATE
  25. RANITIDINE. [Concomitant]
     Active Substance: RANITIDINE

REACTIONS (6)
  - Hypotension [None]
  - Tachycardia [None]
  - Pyrexia [None]
  - Asthenia [None]
  - Abdominal pain [None]
  - Chills [None]

NARRATIVE: CASE EVENT DATE: 20180823
